FAERS Safety Report 10175602 (Version 3)
Quarter: 2014Q2

REPORT INFORMATION
  Report Type: Spontaneous
  Country: US (occurrence: US)
  Receive Date: 20140516
  Receipt Date: 20140616
  Transmission Date: 20141212
  Serious: Yes (Other)
  Sender: FDA-Public Use
  Company Number: US-BIOGENIDEC-2014BI045410

PATIENT
  Age: 74 Year
  Sex: Male

DRUGS (8)
  1. AVONEX [Suspect]
     Indication: MULTIPLE SCLEROSIS
     Route: 030
  2. AVONEX [Suspect]
     Indication: MULTIPLE SCLEROSIS
     Route: 030
     Dates: start: 20071220, end: 201403
  3. BACLOFEN [Concomitant]
  4. PRILOSEC [Concomitant]
  5. LASIX [Concomitant]
  6. DILTIAZEM CD [Concomitant]
  7. AMIODARONE [Concomitant]
  8. MARINOL [Concomitant]

REACTIONS (5)
  - Leukaemia [Not Recovered/Not Resolved]
  - Thymoma [Not Recovered/Not Resolved]
  - Anaemia [Unknown]
  - Atrial fibrillation [Not Recovered/Not Resolved]
  - Pericardial effusion [Unknown]
